FAERS Safety Report 6014508-9 (Version None)
Quarter: 2008Q4

REPORT INFORMATION
  Report Type: 
  Country: None (occurrence: None)
  Receive Date: 20081219
  Receipt Date: 20080725
  Transmission Date: 20090506
  Serious: No
  Sender: FDA-Public Use
  Company Number: A0739587A

PATIENT
  Age: 69 Year
  Sex: Male

DRUGS (3)
  1. AVODART [Suspect]
     Indication: BENIGN PROSTATIC HYPERPLASIA
     Dosage: .5MG PER DAY
     Route: 048
     Dates: start: 20070601
  2. LIPITOR [Concomitant]
  3. ATENOLOL [Concomitant]

REACTIONS (3)
  - DISTURBANCE IN SEXUAL AROUSAL [None]
  - LIBIDO DECREASED [None]
  - PROSTATIC DISORDER [None]
